FAERS Safety Report 8106601-1 (Version None)
Quarter: 2012Q1

REPORT INFORMATION
  Report Type: 
  Country: None (occurrence: None)
  Receive Date: 20120202
  Receipt Date: 20120125
  Transmission Date: 20120608
  Serious: Yes (Hospitalization)
  Sender: FDA-Public Use
  Company Number: US-BAYER-2011-038372

PATIENT
  Age: 39 Year
  Sex: Female

DRUGS (7)
  1. LORTAB [Concomitant]
  2. YASMIN [Suspect]
  3. CALTRATE [Concomitant]
  4. MULTI-VITAMIN [Concomitant]
  5. LEXAPRO [Concomitant]
  6. YAZ [Suspect]
  7. CLARINEX [Concomitant]

REACTIONS (5)
  - ANHEDONIA [None]
  - DEEP VEIN THROMBOSIS [None]
  - ANXIETY [None]
  - INJURY [None]
  - PAIN [None]
